FAERS Safety Report 7673994-9 (Version None)
Quarter: 2011Q3

REPORT INFORMATION
  Report Type: 
  Country: None (occurrence: None)
  Receive Date: 20110810
  Receipt Date: 20110211
  Transmission Date: 20111222
  Serious: No
  Sender: FDA-Public Use
  Company Number: US-GLAXOSMITHKLINE-A0913866A

PATIENT
  Sex: Female

DRUGS (2)
  1. NO CONCURRENT MEDICATION [Concomitant]
  2. PAXIL CR [Suspect]
     Indication: PANIC ATTACK
     Dosage: 20MG UNKNOWN
     Route: 048
     Dates: end: 20100811

REACTIONS (7)
  - WITHDRAWAL SYNDROME [None]
  - TREMOR [None]
  - NERVOUSNESS [None]
  - INSOMNIA [None]
  - HEADACHE [None]
  - PANIC ATTACK [None]
  - CRYING [None]
